FAERS Safety Report 6087946-6 (Version None)
Quarter: 2009Q1

REPORT INFORMATION
  Report Type: 
  Country: None (occurrence: None)
  Receive Date: 20090219
  Receipt Date: 20090211
  Transmission Date: 20090719
  Serious: Yes (Disabling)
  Sender: FDA-Public Use
  Company Number: 1000003468

PATIENT
  Age: 48 Year
  Sex: Female

DRUGS (1)
  1. CELEXA [Suspect]
     Indication: DEPRESSION
     Dosage: 10 MG (10 MG, 1 IN 1 ONCE), ORAL
     Route: 048
     Dates: start: 20030203, end: 20030203

REACTIONS (8)
  - BURNING SENSATION [None]
  - ERYTHEMA [None]
  - HIRSUTISM [None]
  - HYPERTENSION [None]
  - HYPOACUSIS [None]
  - LIP SWELLING [None]
  - NASAL OEDEMA [None]
  - SPIDER VEIN [None]
